FAERS Safety Report 20898296 (Version 6)
Quarter: 2022Q4

REPORT INFORMATION
  Report Type: Spontaneous
  Country: CA (occurrence: CA)
  Receive Date: 20220531
  Receipt Date: 20221010
  Transmission Date: 20230113
  Serious: No
  Sender: FDA-Public Use
  Company Number: CA-CELLTRION INC.-2022CA003722

PATIENT

DRUGS (11)
  1. INFLECTRA [Suspect]
     Active Substance: INFLIXIMAB-DYYB
     Indication: Crohn^s disease
     Dosage: 700 MG Q 4 WEEKS
     Route: 042
     Dates: start: 20200407
  2. INFLECTRA [Suspect]
     Active Substance: INFLIXIMAB-DYYB
     Dosage: 700 MG Q 4 WEEKS
     Route: 042
     Dates: start: 20220202
  3. INFLECTRA [Suspect]
     Active Substance: INFLIXIMAB-DYYB
     Dosage: 700 MG Q 4 WEEKS
     Route: 042
     Dates: start: 20220321
  4. INFLECTRA [Suspect]
     Active Substance: INFLIXIMAB-DYYB
     Dosage: 700 MG Q 4 WEEKS
     Route: 042
     Dates: start: 20220419
  5. INFLECTRA [Suspect]
     Active Substance: INFLIXIMAB-DYYB
     Dosage: 700 MG Q 4 WEEKS
     Route: 042
     Dates: start: 20220517
  6. INFLECTRA [Suspect]
     Active Substance: INFLIXIMAB-DYYB
     Dosage: 700 MG Q 4 WEEKS
     Route: 042
     Dates: start: 20220614
  7. INFLECTRA [Suspect]
     Active Substance: INFLIXIMAB-DYYB
     Dosage: 700 MG Q 4 WEEKS
     Route: 042
     Dates: start: 20220712
  8. INFLECTRA [Suspect]
     Active Substance: INFLIXIMAB-DYYB
     Dosage: 700 MG Q 4 WEEKS
     Route: 042
     Dates: start: 20220809
  9. INFLECTRA [Suspect]
     Active Substance: INFLIXIMAB-DYYB
     Dosage: 700 MG Q 4 WEEKS
     Route: 042
     Dates: start: 20220908
  10. DOXYCYCLINE [Concomitant]
     Active Substance: DOXYCYCLINE
     Indication: Candida infection
     Dosage: 1 DF, UNKNOWN DOSE
     Route: 065
     Dates: start: 20201222
  11. IMURAN [Concomitant]
     Active Substance: AZATHIOPRINE
     Dosage: 1 DF, UNKNOWN DOSE
     Route: 065

REACTIONS (16)
  - Condition aggravated [Not Recovered/Not Resolved]
  - Off label use [Unknown]
  - Off label use [Unknown]
  - Off label use [Unknown]
  - Inappropriate schedule of product administration [Unknown]
  - Intentional product use issue [Unknown]
  - Malaise [Not Recovered/Not Resolved]
  - Lacrimation increased [Not Recovered/Not Resolved]
  - Fatigue [Not Recovered/Not Resolved]
  - Oropharyngeal pain [Not Recovered/Not Resolved]
  - Decreased appetite [Not Recovered/Not Resolved]
  - Bowel movement irregularity [Not Recovered/Not Resolved]
  - Constipation [Recovering/Resolving]
  - Insomnia [Unknown]
  - Asthenia [Recovering/Resolving]
  - Blood pressure increased [Unknown]

NARRATIVE: CASE EVENT DATE: 20200407
